FAERS Safety Report 9685496 (Version 2)
Quarter: 2014Q1

REPORT INFORMATION
  Report Type: Report from Study
  Country: US (occurrence: US)
  Receive Date: 20131113
  Receipt Date: 20140131
  Transmission Date: 20141002
  Serious: Yes (Other)
  Sender: FDA-Public Use
  Company Number: US-009507513-1311USA004348

PATIENT
  Sex: 0

DRUGS (1)
  1. VYTORIN [Suspect]
     Dosage: 10/40MG, QD
     Route: 048

REACTIONS (1)
  - Angina unstable [Unknown]
